FAERS Safety Report 21274141 (Version 1)
Quarter: 2022Q3

REPORT INFORMATION
  Report Type: Spontaneous
  Country: US (occurrence: US)
  Receive Date: 20220831
  Receipt Date: 20220831
  Transmission Date: 20221026
  Serious: Yes (Other)
  Sender: FDA-Public Use
  Company Number: US-BEH-2022149000

PATIENT
  Sex: Female

DRUGS (2)
  1. PRIVIGEN [Suspect]
     Active Substance: HUMAN IMMUNOGLOBULIN G
     Indication: Immunodeficiency common variable
     Dosage: 20 MILLIGRAM, QMT
     Route: 042
     Dates: start: 201908
  2. PRIVIGEN [Suspect]
     Active Substance: HUMAN IMMUNOGLOBULIN G
     Dosage: 5 GRAM, QMT
     Route: 042
     Dates: start: 201908

REACTIONS (5)
  - Cataract [Unknown]
  - Dizziness [Unknown]
  - Gait disturbance [Unknown]
  - Visual impairment [Unknown]
  - Dysarthria [Unknown]
